FAERS Safety Report 13319012 (Version 1)
Quarter: 2017Q1

REPORT INFORMATION
  Report Type: Spontaneous
  Country: GB (occurrence: None)
  Receive Date: 20170309
  Receipt Date: 20170309
  Transmission Date: 20170428
  Serious: Yes (Other)
  Sender: FDA-Public Use
  Company Number: GB2017K1279SPO

PATIENT
  Age: 67 Year
  Sex: Female
  Weight: 107.95 kg

DRUGS (4)
  1. LANSOPRAZOLE GENERIC (LANSOPRAZOLE) UNKNOWN [Suspect]
     Active Substance: LANSOPRAZOLE
     Indication: GASTROOESOPHAGEAL REFLUX DISEASE
     Route: 048
  2. OMEPRAZOLE WORLD (OMEPRAZOLE) UNKNOWN [Suspect]
     Active Substance: OMEPRAZOLE
     Indication: GASTROOESOPHAGEAL REFLUX DISEASE
     Dates: start: 20120510
  3. PARACETAMOL [Concomitant]
     Active Substance: ACETAMINOPHEN
  4. GAVISCON ADVANCE (POTASSIUM BICARBONATE, SODIUM ALGINATE) [Concomitant]

REACTIONS (8)
  - Ear pruritus [None]
  - Skin disorder [None]
  - Burning sensation [None]
  - Dry skin [None]
  - Pruritus [None]
  - Eye pruritus [None]
  - Papule [None]
  - Rash [None]
